FAERS Safety Report 18401027 (Version 1)
Quarter: 2020Q4

REPORT INFORMATION
  Report Type: Spontaneous
  Country: US (occurrence: US)
  Receive Date: 20201019
  Receipt Date: 20201019
  Transmission Date: 20210114
  Serious: No
  Sender: FDA-Public Use
  Company Number: US-ELI_LILLY_AND_COMPANY-US202010001423

PATIENT
  Sex: Female

DRUGS (1)
  1. TRULICITY [Suspect]
     Active Substance: DULAGLUTIDE
     Indication: TYPE 2 DIABETES MELLITUS
     Dosage: 1.5 MG, UNKNOWN
     Route: 058
     Dates: start: 202005

REACTIONS (6)
  - Injection site rash [Unknown]
  - Injection site hypersensitivity [Unknown]
  - Cough [Unknown]
  - Multiple allergies [Unknown]
  - Decreased appetite [Unknown]
  - Injection site pruritus [Unknown]
